FAERS Safety Report 10538505 (Version 2)
Quarter: 2014Q4

REPORT INFORMATION
  Report Type: Spontaneous
  Country: US (occurrence: US)
  Receive Date: 20141023
  Receipt Date: 20141023
  Transmission Date: 20150529
  Serious: Yes (Hospitalization, Other)
  Sender: FDA-Public Use
  Company Number: US-GLAXOSMITHKLINE-A0881910A

PATIENT
  Sex: Female

DRUGS (2)
  1. AVANDIA [Suspect]
     Active Substance: ROSIGLITAZONE MALEATE
     Indication: TYPE 2 DIABETES MELLITUS
     Dosage: 4 MG, QD
     Route: 065
     Dates: start: 1999, end: 200705
  2. ROSIGLITAZONE [Suspect]
     Active Substance: ROSIGLITAZONE
     Indication: DIABETES MELLITUS
     Dosage: 4 MG, QD
     Dates: start: 200605, end: 200704

REACTIONS (9)
  - Cardiac failure congestive [Unknown]
  - Angina pectoris [Unknown]
  - Hypertensive heart disease [Unknown]
  - Arteriosclerosis coronary artery [Unknown]
  - Arrhythmia [Unknown]
  - Coronary artery disease [Unknown]
  - Sinus tachycardia [Unknown]
  - Respiratory failure [Unknown]
  - Myocardial infarction [Not Recovered/Not Resolved]
